FAERS Safety Report 9647727 (Version 1)
Quarter: 2013Q4

REPORT INFORMATION
  Report Type: Spontaneous
  Country: AU (occurrence: AU)
  Receive Date: 20131028
  Receipt Date: 20131028
  Transmission Date: 20140711
  Serious: Yes (Death)
  Sender: FDA-Public Use
  Company Number: 2013SP007513

PATIENT
  Age: 15 Year
  Sex: Male

DRUGS (1)
  1. VANCOMYCIN [Suspect]
     Indication: STAPHYLOCOCCAL INFECTION
     Route: 042

REACTIONS (8)
  - Drug reaction with eosinophilia and systemic symptoms [Fatal]
  - Pyrexia [Fatal]
  - Rash erythematous [Fatal]
  - Eosinophilia [Fatal]
  - Lymphocytosis [Fatal]
  - Hypotension [Fatal]
  - Hepatic failure [Fatal]
  - Renal impairment [Fatal]
